FAERS Safety Report 6427154-X (Version None)
Quarter: 2009Q4

REPORT INFORMATION
  Report Type: 
  Country: None (occurrence: None)
  Receive Date: 20091030
  Receipt Date: 20091016
  Transmission Date: 20100525
  Serious: Yes (Hospitalization)
  Sender: FDA-Public Use
  Company Number: 2009AC000248

PATIENT
  Age: 64 Year
  Sex: Male

DRUGS (12)
  1. DIGOXIN [Suspect]
     Indication: ARRHYTHMIA
     Dosage: UNKNOWN;PO
     Route: 048
  2. PROTONIX [Concomitant]
  3. FOSAMAX [Concomitant]
  4. CELEXA [Concomitant]
  5. SIMAVASTATIN [Concomitant]
  6. COREG [Concomitant]
  7. ASPIRIN [Concomitant]
  8. * CALCIUM [Concomitant]
  9. CELEXA [Concomitant]
  10. FOLIC ACID [Concomitant]
  11. FOSAMAX [Concomitant]
  12. * OMEGA [Concomitant]

REACTIONS (12)
  - ANAEMIA [None]
  - ANHEDONIA [None]
  - ANXIETY [None]
  - BRADYCARDIA [None]
  - CARDIAC DISORDER [None]
  - DIZZINESS [None]
  - HYPOTENSION [None]
  - INJURY [None]
  - MUSCULOSKELETAL CHEST PAIN [None]
  - PAIN [None]
  - RENAL FAILURE ACUTE [None]
  - THERAPEUTIC AGENT TOXICITY [None]
